FAERS Safety Report 8789384 (Version 3)
Quarter: 2012Q4

REPORT INFORMATION
  Report Type: Spontaneous
  Country: US (occurrence: None)
  Receive Date: 20120905
  Receipt Date: 20121010
  Transmission Date: 20130627
  Serious: Yes (Other)
  Sender: FDA-Public Use
  Company Number: AUR-APL-2012-03763

PATIENT
  Age: 58 Year
  Sex: Male
  Weight: 90.7 kg

DRUGS (11)
  1. HYDROCHLOROTHIAZIDE [Suspect]
     Indication: NEPHROLITHIASIS
  2. LYRICA [Suspect]
     Indication: PAIN
     Dates: start: 20120501
  3. LYRICA [Suspect]
     Indication: PAIN
     Route: 048
  4. LYRICA [Suspect]
     Indication: PAIN
     Dates: start: 20120501, end: 20130606
  5. LYRICA [Suspect]
     Indication: PAIN
     Route: 048
  6. LYRICA [Suspect]
     Indication: PAIN
     Dates: start: 20120501, end: 20120814
  7. LYRICA [Suspect]
     Indication: PAIN
  8. POTASSIUM CITRATE [Suspect]
     Indication: NEPHROLITHIASIS
  9. POTASSIUM CITRATE [Suspect]
     Indication: NEPHROLITHIASIS
  10. CIMZIA [Concomitant]
  11. SULINDAC (SULINDAC) [Concomitant]

REACTIONS (2)
  - Nephrolithiasis [None]
  - Disease recurrence [None]
